FAERS Safety Report 10533619 (Version 1)
Quarter: 2014Q4

REPORT INFORMATION
  Report Type: Spontaneous
  Country: US (occurrence: None)
  Receive Date: 20141021
  Receipt Date: 20141021
  Transmission Date: 20150529
  Serious: Yes (Other)
  Sender: FDA-Public Use
  Company Number: None

PATIENT
  Age: 45 Year
  Sex: Female
  Weight: 57.61 kg

DRUGS (1)
  1. PEPCID [Suspect]
     Active Substance: FAMOTIDINE
     Indication: DRUG THERAPY
     Dosage: INJ DILUTION -20MG; IV PUSH
     Dates: start: 20141013, end: 20141013

REACTIONS (4)
  - Malaise [None]
  - Confusional state [None]
  - Dizziness [None]
  - Feeling drunk [None]

NARRATIVE: CASE EVENT DATE: 20141013
